FAERS Safety Report 4459908-3 (Version None)
Quarter: 2004Q3

REPORT INFORMATION
  Report Type: 
  Country: None (occurrence: None)
  Receive Date: 20040928
  Receipt Date: 20030903
  Transmission Date: 20050211
  Serious: No
  Sender: FDA-Public Use
  Company Number: US-GLAXOSMITHKLINE-A0424526A

PATIENT

DRUGS (3)
  1. SEREVENT [Suspect]
     Indication: ILL-DEFINED DISORDER
     Dosage: 50MCG TWICE PER DAY
     Route: 055
  2. FLOVENT [Suspect]
     Indication: ILL-DEFINED DISORDER
     Dosage: 1PUFF TWICE PER DAY
     Route: 055
  3. ADVAIR DISKUS 100/50 [Suspect]
     Indication: ILL-DEFINED DISORDER
     Dosage: 1PUFF TWICE PER DAY
     Route: 055

REACTIONS (1)
  - OVERDOSE [None]
